FAERS Safety Report 21591954 (Version 1)
Quarter: 2022Q4

REPORT INFORMATION
  Report Type: Spontaneous
  Country: IT (occurrence: IT)
  Receive Date: 20221114
  Receipt Date: 20221114
  Transmission Date: 20230113
  Serious: Yes (Life-Threatening, Hospitalization, Other)
  Sender: FDA-Public Use
  Company Number: IT-Accord-284945

PATIENT
  Age: 2 Day
  Sex: Male

DRUGS (10)
  1. LEVETIRACETAM [Suspect]
     Active Substance: LEVETIRACETAM
     Indication: Seizure
     Dosage: LOAD DOSE
  2. MIDAZOLAM HYDROCHLORIDE [Suspect]
     Active Substance: MIDAZOLAM HYDROCHLORIDE
     Indication: Seizure
     Dosage: PROGRESSIVELY REDUCED
  3. FENTANYL [Suspect]
     Active Substance: FENTANYL
     Indication: Hypoxic-ischaemic encephalopathy
  4. EPINEPHRINE [Concomitant]
     Active Substance: EPINEPHRINE
     Indication: Heart rate abnormal
  5. PHENOBARBITAL [Suspect]
     Active Substance: PHENOBARBITAL
     Indication: Seizure
     Dosage: MAINTENANCE DOSE
  6. FENTANYL [Suspect]
     Active Substance: FENTANYL
     Indication: Hypoxic-ischaemic encephalopathy
  7. LEVETIRACETAM [Suspect]
     Active Substance: LEVETIRACETAM
     Indication: Seizure
     Dosage: MAINTENANCE DOSE
  8. MIDAZOLAM HYDROCHLORIDE [Suspect]
     Active Substance: MIDAZOLAM HYDROCHLORIDE
     Indication: Seizure
     Dosage: PROGRESSIVELY REDUCED
  9. MIDAZOLAM HYDROCHLORIDE [Suspect]
     Active Substance: MIDAZOLAM HYDROCHLORIDE
     Indication: Seizure
  10. PHENOBARBITAL [Suspect]
     Active Substance: PHENOBARBITAL
     Indication: Seizure
     Dosage: LOAD DOSE

REACTIONS (3)
  - Coma neonatal [Recovered/Resolved]
  - Electroencephalogram abnormal [Recovered/Resolved]
  - Off label use [Unknown]
